FAERS Safety Report 6585002-1 (Version None)
Quarter: 2010Q1

REPORT INFORMATION
  Report Type: 
  Country: None (occurrence: None)
  Receive Date: 20100217
  Receipt Date: 20100208
  Transmission Date: 20100710
  Serious: No
  Sender: FDA-Public Use
  Company Number: US-B.I. PHARMACEUTICALS,INC./RIDGEFIELD-2010-BP-01513BP

PATIENT
  Age: 67 Year
  Sex: Female

DRUGS (4)
  1. SPIRIVA [Suspect]
     Indication: EMPHYSEMA
     Dosage: 18 MCG
     Route: 055
     Dates: start: 20080101
  2. ALBUTEROL [Suspect]
     Indication: EMPHYSEMA
     Dates: start: 20090201
  3. SEREVENT [Suspect]
     Indication: EMPHYSEMA
     Dates: start: 20090201
  4. AMLODIPINE [Concomitant]
     Indication: HYPERTENSION
     Dates: start: 20080101

REACTIONS (1)
  - DYSPNOEA [None]
